FAERS Safety Report 8282146-3 (Version None)
Quarter: 2012Q2

REPORT INFORMATION
  Report Type: 
  Country: None (occurrence: None)
  Receive Date: 20120413
  Receipt Date: 20120410
  Transmission Date: 20120825
  Serious: Yes (Life-Threatening, Hospitalization)
  Sender: FDA-Public Use
  Company Number: PHHY2012FR030584

PATIENT
  Sex: Female

DRUGS (14)
  1. PAROXETINE HYDROCHLORIDE [Concomitant]
  2. INSULATARD NPH HUMAN [Concomitant]
  3. CLOZAPINE [Suspect]
     Dosage: 25 MG/DAILY
     Route: 048
     Dates: start: 20120213, end: 20120313
  4. EXELON [Concomitant]
  5. LASIX [Concomitant]
  6. AMLODIPINE BESYLATE [Concomitant]
  7. LEVOTHYROXINE SODIUM [Concomitant]
  8. BIMATOPROST AND TIMOLOL MALEATE [Concomitant]
  9. VALPROIC ACID [Concomitant]
  10. CALCIUM D3 [Concomitant]
  11. ACETAMINOPHEN [Concomitant]
  12. POTASSIUM CHLORIDE [Concomitant]
  13. CLOZAPINE [Suspect]
     Dosage: 12.5 MG/ DAY
     Route: 048
     Dates: start: 20120103
  14. LAMICTAL [Suspect]
     Dosage: UNK UKN, UNK

REACTIONS (5)
  - AGRANULOCYTOSIS [None]
  - FALL [None]
  - PYREXIA [None]
  - SINUSITIS [None]
  - HAEMOGLOBIN DECREASED [None]
